FAERS Safety Report 7419399-7 (Version None)
Quarter: 2011Q2

REPORT INFORMATION
  Report Type: 
  Country: None (occurrence: None)
  Receive Date: 20110416
  Receipt Date: 20110405
  Transmission Date: 20111010
  Serious: Yes (Other)
  Sender: FDA-Public Use
  Company Number: US-RB-023486-11

PATIENT
  Age: 53 Year
  Sex: Female

DRUGS (4)
  1. AUGMENTIN [Concomitant]
  2. LODRANE [Concomitant]
  3. MUCINEX DM [Suspect]
     Indication: PRODUCT USED FOR UNKNOWN INDICATION
     Dosage: DOSE TAKEN ON 17-MAR-2011
     Route: 048
  4. WELLBUTRIN [Concomitant]

REACTIONS (3)
  - HYPOAESTHESIA [None]
  - DISORIENTATION [None]
  - HALLUCINATION [None]
